FAERS Safety Report 9738172 (Version 2)
Quarter: 2013Q4

REPORT INFORMATION
  Report Type: Spontaneous
  Country: US (occurrence: US)
  Receive Date: 20131208
  Receipt Date: 20131208
  Transmission Date: 20140711
  Serious: No
  Sender: FDA-Public Use
  Company Number: -SAAVPROD-RENA-1001776

PATIENT
  Age: 86 Year
  Sex: Female

DRUGS (1)
  1. SEVELAMER CARBONATE [Suspect]
     Indication: PRODUCT USED FOR UNKNOWN INDICATION
     Dosage: 9.8 G, QD
     Route: 048
     Dates: start: 201206

REACTIONS (4)
  - Choking [Recovered/Resolved]
  - Throat irritation [Recovered/Resolved]
  - Aspiration [Unknown]
  - Cough [Recovered/Resolved]
